FAERS Safety Report 7811620-6 (Version None)
Quarter: 2011Q4

REPORT INFORMATION
  Report Type: 
  Country: None (occurrence: None)
  Receive Date: 20111013
  Receipt Date: 20111004
  Transmission Date: 20120403
  Serious: Yes (Hospitalization)
  Sender: FDA-Public Use
  Company Number: FR-SANOFI-AVENTIS-2011SA064648

PATIENT
  Age: 66 Year
  Sex: Male

DRUGS (11)
  1. CLOPIDOGREL [Suspect]
     Route: 048
  2. ESOMEPRAZOLE SODIUM [Suspect]
     Route: 048
  3. CISPLATIN [Suspect]
     Route: 042
     Dates: end: 20101001
  4. SIMVASTATIN [Suspect]
     Route: 048
  5. TAXOTERE [Suspect]
     Route: 042
     Dates: start: 20100701, end: 20100701
  6. CISPLATIN [Suspect]
     Route: 042
     Dates: start: 20100701
  7. METOCLOPRAMIDE [Suspect]
     Route: 065
     Dates: start: 20100701, end: 20101001
  8. TAXOTERE [Suspect]
     Route: 042
     Dates: end: 20101001
  9. ZOLPIDEM [Suspect]
     Route: 048
  10. DOMPERIDONE [Suspect]
     Route: 065
     Dates: start: 20100701
  11. CORTICOSTEROIDS [Concomitant]

REACTIONS (3)
  - PULMONARY VENO-OCCLUSIVE DISEASE [None]
  - RESPIRATORY FAILURE [None]
  - PULMONARY ARTERIAL HYPERTENSION [None]
